FAERS Safety Report 6464903-9 (Version None)
Quarter: 2009Q4

REPORT INFORMATION
  Report Type: 
  Country: None (occurrence: None)
  Receive Date: 20091201
  Receipt Date: 20091119
  Transmission Date: 20100525
  Serious: Yes (Other)
  Sender: FDA-Public Use
  Company Number: B0603510A

PATIENT
  Age: 79 Year
  Sex: Male

DRUGS (3)
  1. ACYCLOVIR [Suspect]
     Indication: HERPES ZOSTER
     Dosage: 750MG PER DAY
     Route: 042
  2. ACYCLOVIR [Suspect]
     Indication: MENINGOENCEPHALITIS HERPETIC
     Dosage: 2250MG PER DAY
     Route: 042
  3. CONCENTRATED GLYCERIN FRUCTOSE [Concomitant]
     Dosage: 400ML PER DAY

REACTIONS (9)
  - ALTERED STATE OF CONSCIOUSNESS [None]
  - BLOOD CREATININE INCREASED [None]
  - BLOOD UREA INCREASED [None]
  - DISORIENTATION [None]
  - DYSARTHRIA [None]
  - DYSURIA [None]
  - ENCEPHALITIS HERPES [None]
  - RENAL IMPAIRMENT [None]
  - VOMITING [None]
